FAERS Safety Report 10641788 (Version 1)
Quarter: 2014Q4

REPORT INFORMATION
  Report Type: Spontaneous
  Country: US (occurrence: US)
  Receive Date: 20141209
  Receipt Date: 20141209
  Transmission Date: 20150529
  Serious: Yes (Other)
  Sender: FDA-Public Use
  Company Number: US-ELI_LILLY_AND_COMPANY-US201412002080

PATIENT
  Sex: Male

DRUGS (9)
  1. INSULIN HUMAN [Suspect]
     Active Substance: INSULIN HUMAN
     Dosage: 350 U, QD
     Route: 058
     Dates: start: 201410
  2. LYRICA [Concomitant]
     Active Substance: PREGABALIN
  3. METOPROLOL [Concomitant]
     Active Substance: METOPROLOL
  4. AMLODIPINE [Concomitant]
     Active Substance: AMLODIPINE BESYLATE
  5. FUROSEMIDE. [Concomitant]
     Active Substance: FUROSEMIDE
  6. CELEBREX [Concomitant]
     Active Substance: CELECOXIB
  7. VALSARTAN. [Concomitant]
     Active Substance: VALSARTAN
  8. INSULIN HUMAN [Suspect]
     Active Substance: INSULIN HUMAN
     Indication: DIABETES MELLITUS
     Dosage: 500 U, QD
     Route: 065
  9. ATORVASTATIN [Concomitant]
     Active Substance: ATORVASTATIN

REACTIONS (4)
  - Blood glucose increased [Unknown]
  - Blood glucose decreased [Recovered/Resolved]
  - Coronary artery occlusion [Unknown]
  - Wrong technique in drug usage process [Not Recovered/Not Resolved]

NARRATIVE: CASE EVENT DATE: 201409
